FAERS Safety Report 5884076-0 (Version None)
Quarter: 2008Q3

REPORT INFORMATION
  Report Type: 
  Country: None (occurrence: None)
  Receive Date: 20080915
  Receipt Date: 20080908
  Transmission Date: 20090109
  Serious: No
  Sender: FDA-Public Use
  Company Number: BR-ABBOTT-08P-020-0465952-00

PATIENT
  Sex: Female

DRUGS (7)
  1. HUMIRA [Suspect]
     Indication: RHEUMATOID ARTHRITIS
     Dosage: ONE APPLICATION EVERY 14 DAYS
     Route: 058
     Dates: start: 20070901
  2. LEFLUNOMIDE [Concomitant]
     Indication: DRUG USE FOR UNKNOWN INDICATION
  3. CYCLOBENZAPRINE HCL [Concomitant]
     Indication: DRUG USE FOR UNKNOWN INDICATION
  4. SERTRALINE [Concomitant]
     Indication: FIBROMYALGIA
  5. CHLORTHALIDONE [Concomitant]
     Indication: HYPERTENSION
  6. CORTICOID [Concomitant]
     Indication: BRONCHITIS
     Route: 055
  7. ZOLEDRONIC ACID [Concomitant]
     Indication: OSTEOPOROSIS
     Route: 050

REACTIONS (1)
  - FALL [None]
